FAERS Safety Report 10309233 (Version 3)
Quarter: 2014Q3

REPORT INFORMATION
  Report Type: Report from Study
  Country: US (occurrence: US)
  Receive Date: 20140716
  Receipt Date: 20140821
  Transmission Date: 20150326
  Serious: Yes (Life-Threatening, Hospitalization)
  Sender: FDA-Public Use
  Company Number: US-009507513-1406USA004759

PATIENT
  Age: 65 Year
  Sex: Male
  Weight: 45.99 kg

DRUGS (4)
  1. VORINOSTAT [Suspect]
     Active Substance: VORINOSTAT
     Indication: MYELODYSPLASTIC SYNDROME
     Dosage: 200 MG, BID (ON DAYS 3-9) (CYCLE 5)
     Route: 048
     Dates: start: 20140604, end: 20140606
  2. VORINOSTAT [Suspect]
     Active Substance: VORINOSTAT
     Dosage: 300 MG, BID (ON DAYS 3-9) (CYCLE 1)
     Route: 048
     Dates: start: 20131123, end: 20131129
  3. AZACITIDINE. [Suspect]
     Active Substance: AZACITIDINE
     Dosage: 75MG/M2 SQ OR IV ON DAYS 1-7 OR 75MG/M2 SQ OR IV  ON DAYS 1-5  AND DAYS 8-9(CYCLE 1)
     Dates: start: 20131121
  4. AZACITIDINE. [Suspect]
     Active Substance: AZACITIDINE
     Indication: MYELODYSPLASTIC SYNDROME
     Dosage: 75MG/M2 SQ OR IV ON DAYS 1-7 OR 75MG/M2 SQ OR IV  ON DAYS 1-5  AND DAYS 8-9(CYCLE 5)
     Dates: start: 20140602, end: 20140605

REACTIONS (4)
  - Skin infection [Not Recovered/Not Resolved]
  - Dyspnoea [Recovered/Resolved]
  - Cellulitis [Recovered/Resolved]
  - Dyspnoea [Recovered/Resolved]

NARRATIVE: CASE EVENT DATE: 20140606
